FAERS Safety Report 6606742 (Version 4)
Quarter: 2020Q3

REPORT INFORMATION
  Report Type: Spontaneous
  Country: US (occurrence: US)
  Receive Date: 20080404
  Receipt Date: 20200915
  Transmission Date: 20201103
  Serious: Yes (Hospitalization, Other)
  Sender: FDA-Public Use
  Company Number: US-PFIZER INC-2008028166

PATIENT
  Age: 55 Year
  Sex: Female

DRUGS (1)
  1. PENICILLIN G PROCAINE FOR SUSPENSION, STERILE [Suspect]
     Active Substance: PENICILLIN G PROCAINE
     Indication: SINUSITIS
     Dosage: UNK
     Route: 030

REACTIONS (2)
  - Myocardial ischaemia [Recovered/Resolved]
  - Anaphylactic reaction [Recovered/Resolved]
